FAERS Safety Report 20706011 (Version 3)
Quarter: 2022Q2

REPORT INFORMATION
  Report Type: Spontaneous
  Country: US (occurrence: US)
  Receive Date: 20220413
  Receipt Date: 20220620
  Transmission Date: 20220720
  Serious: Yes (Other)
  Sender: FDA-Public Use
  Company Number: US-PFIZER INC-202200560258

PATIENT
  Age: 65 Year
  Sex: Female

DRUGS (1)
  1. IBRANCE [Suspect]
     Active Substance: PALBOCICLIB
     Indication: Breast cancer female
     Dosage: 125 MG

REACTIONS (14)
  - Rheumatoid arthritis [Unknown]
  - Intracranial aneurysm [Unknown]
  - Feeling abnormal [Unknown]
  - Radiation injury [Unknown]
  - Hypoaesthesia [Unknown]
  - Malaise [Unknown]
  - Dyspepsia [Unknown]
  - Back pain [Unknown]
  - Lethargy [Unknown]
  - Somnolence [Unknown]
  - Arthropathy [Unknown]
  - Gait disturbance [Unknown]
  - Neuralgia [Unknown]
  - Spinal pain [Unknown]
